FAERS Safety Report 9613561 (Version 1)
Quarter: 2013Q4

REPORT INFORMATION
  Report Type: Spontaneous
  Country: JP (occurrence: JP)
  Receive Date: 20131010
  Receipt Date: 20131010
  Transmission Date: 20140711
  Serious: Yes (Other)
  Sender: FDA-Public Use
  Company Number: JP-PERRIGO-13JP010092

PATIENT
  Age: 21 Month
  Sex: Female

DRUGS (5)
  1. MIDAZOLAM HCL RX 2 MG/ML 7H8 [Suspect]
     Indication: INDUCTION OF ANAESTHESIA
     Dosage: UNKNOWN, UNKNOWN
     Route: 065
  2. FENTANYL [Suspect]
     Indication: INDUCTION OF ANAESTHESIA
     Dosage: UNKNOWN, UNKNOWN
     Route: 065
  3. ROCURONIUM [Suspect]
     Indication: INDUCTION OF ANAESTHESIA
     Dosage: UNKNOWN, UNKNOWN
     Route: 065
  4. SEVOFLURANE [Concomitant]
     Indication: MAINTENANCE OF ANAESTHESIA
     Dosage: UNKNOWN, UNKNOWN
     Route: 065
  5. REMIFENTANIL [Concomitant]
     Indication: MAINTENANCE OF ANAESTHESIA
     Dosage: UNKNOWN, UNKNOWN
     Route: 065

REACTIONS (2)
  - Pulmonary vascular disorder [Recovered/Resolved]
  - Oxygen saturation decreased [Recovered/Resolved]
